FAERS Safety Report 9142762 (Version 1)
Quarter: 2013Q1

REPORT INFORMATION
  Report Type: Spontaneous
  Country: US (occurrence: US)
  Receive Date: 20130306
  Receipt Date: 20130306
  Transmission Date: 20140127
  Serious: No
  Sender: FDA-Public Use
  Company Number: US-ENDO PHARMACEUTICALS INC.-OPIR20110036

PATIENT
  Age: 53 Year
  Sex: Female

DRUGS (1)
  1. OPANA [Suspect]
     Indication: PRODUCT USED FOR UNKNOWN INDICATION
     Dosage: UNK
     Route: 048

REACTIONS (5)
  - Feeling abnormal [Unknown]
  - Apathy [Unknown]
  - Emotional poverty [Unknown]
  - Swelling face [Unknown]
  - Nausea [Unknown]
